FAERS Safety Report 7366388-7 (Version None)
Quarter: 2011Q1

REPORT INFORMATION
  Report Type: 
  Country: None (occurrence: None)
  Receive Date: 20110322
  Receipt Date: 20110315
  Transmission Date: 20110831
  Serious: Yes (Hospitalization)
  Sender: FDA-Public Use
  Company Number: FR-BRISTOL-MYERS SQUIBB COMPANY-15614787

PATIENT
  Age: 74 Year
  Sex: Male
  Weight: 93 kg

DRUGS (10)
  1. PLAVIX [Suspect]
     Dosage: 1 TAB
  2. LANTUS [Concomitant]
  3. COUMADIN [Suspect]
     Dosage: INTERRUPTED ON 12FEB11,3/4 TH OF TAB DAILY
     Route: 048
     Dates: start: 20101214
  4. TAHOR [Concomitant]
  5. REPAGLINIDE [Concomitant]
  6. PAROXETINE HCL [Concomitant]
  7. BISOPROLOL FUMARATE [Concomitant]
  8. LASIX [Concomitant]
  9. RAMIPRIL [Concomitant]
  10. INSPRA [Concomitant]

REACTIONS (3)
  - FALL [None]
  - DISORIENTATION [None]
  - INTERNATIONAL NORMALISED RATIO INCREASED [None]
